FAERS Safety Report 8235301-2 (Version None)
Quarter: 2012Q1

REPORT INFORMATION
  Report Type: 
  Country: None (occurrence: None)
  Receive Date: 20120322
  Receipt Date: 20120308
  Transmission Date: 20120608
  Serious: Yes (Other)
  Sender: FDA-Public Use
  Company Number: 2012-1072

PATIENT
  Age: 61 Year
  Sex: Female
  Weight: 58 kg

DRUGS (3)
  1. CALCIUM CARBONATE [Concomitant]
  2. DYSPORT [Suspect]
     Indication: SKIN WRINKLING
     Dosage: 12 UNITS (12 UNITS, SINGLE CYCLE)
     Dates: start: 20120224, end: 20120224
  3. WELLBUTRIN [Concomitant]

REACTIONS (6)
  - MUSCULAR WEAKNESS [None]
  - ANXIETY [None]
  - FEELING ABNORMAL [None]
  - SENSORY DISTURBANCE [None]
  - OFF LABEL USE [None]
  - BLADDER DISORDER [None]
